FAERS Safety Report 24252913 (Version 1)
Quarter: 2024Q3

REPORT INFORMATION
  Report Type: Report from Study
  Country: US (occurrence: None)
  Receive Date: 20240827
  Receipt Date: 20240827
  Transmission Date: 20241016
  Serious: Yes (Other)
  Sender: ASTRAZENECA
  Company Number: 2024A189182

PATIENT
  Sex: Male

DRUGS (1)
  1. CALQUENCE [Suspect]
     Active Substance: ACALABRUTINIB
     Indication: Chronic lymphocytic leukaemia
     Route: 048

REACTIONS (6)
  - Thrombosis [Unknown]
  - Neuropathy peripheral [Unknown]
  - Retinal detachment [Unknown]
  - Cataract [Unknown]
  - Haemorrhage [Unknown]
  - Eye haemorrhage [Unknown]
